FAERS Safety Report 18366782 (Version 2)
Quarter: 2020Q4

REPORT INFORMATION
  Report Type: Spontaneous
  Country: CA (occurrence: CA)
  Receive Date: 20201009
  Receipt Date: 20201124
  Transmission Date: 20210114
  Serious: Yes (Other)
  Sender: FDA-Public Use
  Company Number: CA-PFIZER INC-2020246516

PATIENT
  Age: 58 Year
  Sex: Female

DRUGS (3)
  1. XELJANZ [Suspect]
     Active Substance: TOFACITINIB CITRATE
     Dosage: 5 MG, 2X/DAY
     Route: 048
     Dates: start: 2020, end: 2020
  2. XELJANZ [Suspect]
     Active Substance: TOFACITINIB CITRATE
     Indication: RHEUMATOID ARTHRITIS
     Dosage: 5 MG, 2X/DAY
     Route: 048
     Dates: start: 20200619, end: 202009
  3. TYLENOL [Concomitant]
     Active Substance: ACETAMINOPHEN
     Dosage: UNK, AS NEEDED
     Route: 065

REACTIONS (22)
  - Hernia [Unknown]
  - Headache [Unknown]
  - Migraine [Unknown]
  - Lip blister [Unknown]
  - Tongue discomfort [Unknown]
  - Bowel movement irregularity [Unknown]
  - Rhinorrhoea [Unknown]
  - Asthenia [Unknown]
  - Frequent bowel movements [Unknown]
  - Oropharyngeal pain [Unknown]
  - Genital discomfort [Unknown]
  - Oral mucosal erythema [Unknown]
  - Condition aggravated [Unknown]
  - Therapeutic product effect incomplete [Unknown]
  - Vertigo [Unknown]
  - Pain [Unknown]
  - Fatigue [Unknown]
  - Oral discomfort [Unknown]
  - Diarrhoea [Unknown]
  - Fear of disease [Unknown]
  - Balance disorder [Unknown]
  - Abdominal pain upper [Unknown]

NARRATIVE: CASE EVENT DATE: 2020
